FAERS Safety Report 6234009-2 (Version None)
Quarter: 2009Q2

REPORT INFORMATION
  Report Type: 
  Country: None (occurrence: None)
  Receive Date: 20090612
  Receipt Date: 20090310
  Transmission Date: 20091009
  Serious: Yes (Death, Hospitalization)
  Sender: FDA-Public Use
  Company Number: D01200901966

PATIENT
  Age: 28 Year
  Sex: Female

DRUGS (3)
  1. CISPLATIN [Suspect]
     Indication: SARCOMA
     Dosage: 46 MG Q3W INTRAVENOUS DRIP
     Route: 041
     Dates: start: 20090309, end: 20090309
  2. (PLACEBO) - SOLUTION - 25 MG/M2 [Suspect]
     Dosage: 138 MG Q3W INTRAVENOUS DRIP
     Route: 041
     Dates: start: 20090309, end: 20090309
  3. GEMCITABINE [Concomitant]

REACTIONS (4)
  - DISEASE PROGRESSION [None]
  - GENERAL PHYSICAL HEALTH DETERIORATION [None]
  - HAEMATURIA [None]
  - SARCOMA [None]
